FAERS Safety Report 6685105-7 (Version None)
Quarter: 2010Q2

REPORT INFORMATION
  Report Type: 
  Country: None (occurrence: None)
  Receive Date: 20100416
  Receipt Date: 20100407
  Transmission Date: 20101027
  Serious: Yes (Life-Threatening)
  Sender: FDA-Public Use
  Company Number: Z0003738A

PATIENT
  Sex: Male
  Weight: 80 kg

DRUGS (1)
  1. ZANAMIVIR [Suspect]
     Indication: INFLUENZA
     Dosage: 600MG TWICE PER DAY
     Route: 042
     Dates: start: 20100325

REACTIONS (1)
  - ARRHYTHMIA [None]
